FAERS Safety Report 12737623 (Version 1)
Quarter: 2016Q3

REPORT INFORMATION
  Report Type: Spontaneous
  Country: US (occurrence: US)
  Receive Date: 20160913
  Receipt Date: 20160913
  Transmission Date: 20161109
  Serious: No
  Sender: FDA-Public Use
  Company Number: US-MIKART, INC.-1057276

PATIENT
  Age: 31 Year
  Sex: Male
  Weight: 86.36 kg

DRUGS (1)
  1. DEXTROAMPHETAMINE SULFATE. [Suspect]
     Active Substance: DEXTROAMPHETAMINE SULFATE
     Route: 048
     Dates: start: 20160715, end: 20160716

REACTIONS (4)
  - Headache [Recovered/Resolved]
  - Antisocial behaviour [Recovered/Resolved]
  - Speech disorder [Recovered/Resolved]
  - Disturbance in attention [Recovered/Resolved]

NARRATIVE: CASE EVENT DATE: 20160715
